FAERS Safety Report 25607986 (Version 1)
Quarter: 2025Q3

REPORT INFORMATION
  Report Type: Spontaneous
  Country: US (occurrence: US)
  Receive Date: 20250725
  Receipt Date: 20250725
  Transmission Date: 20251020
  Serious: Yes (Other)
  Sender: DR REDDYS
  Company Number: US-DRL-USA-USA/2025/07/011079

PATIENT
  Age: 47 Year
  Sex: Female

DRUGS (5)
  1. CYCLOPHOSPHAMIDE [Suspect]
     Active Substance: CYCLOPHOSPHAMIDE
     Indication: Mucous membrane pemphigoid
  2. AZATHIOPRINE [Concomitant]
     Active Substance: AZATHIOPRINE
     Indication: Mucous membrane pemphigoid
  3. INFLIXIMAB [Concomitant]
     Active Substance: INFLIXIMAB
     Indication: Mucous membrane pemphigoid
  4. RITUXIMAB [Concomitant]
     Active Substance: RITUXIMAB
     Indication: Mucous membrane pemphigoid
  5. HUMAN IMMUNOGLOBULIN G [Concomitant]
     Active Substance: HUMAN IMMUNOGLOBULIN G
     Indication: Mucous membrane pemphigoid
     Route: 042

REACTIONS (2)
  - Treatment failure [Unknown]
  - Product use in unapproved indication [Unknown]
